FAERS Safety Report 9904852 (Version 1)
Quarter: 2014Q1

REPORT INFORMATION
  Report Type: Spontaneous
  Country: CA (occurrence: CA)
  Receive Date: 20140218
  Receipt Date: 20140218
  Transmission Date: 20141002
  Serious: Yes (Hospitalization, Other)
  Sender: FDA-Public Use
  Company Number: CA-ASTRAZENECA-2014SE10143

PATIENT
  Age: 81 Year
  Sex: Male
  Weight: 75 kg

DRUGS (12)
  1. BRILINTA [Suspect]
     Route: 048
  2. BRILINTA [Suspect]
     Route: 048
  3. BRILINTA [Suspect]
     Dosage: 180 MG ONCE
     Route: 048
  4. ATORVASTATIN CALCIUM [Suspect]
     Route: 048
  5. ATORVASTATIN CALCIUM [Suspect]
     Route: 048
  6. AMLODIPINE [Concomitant]
  7. BISOPROLOL [Concomitant]
  8. HYDROMORPHONE [Concomitant]
  9. LATANOPROST [Concomitant]
  10. PANTOPRAZOLE [Concomitant]
  11. PERINDOPRIL [Concomitant]
  12. SPIRIVA [Concomitant]

REACTIONS (2)
  - Blood creatine phosphokinase increased [Recovered/Resolved]
  - Rhabdomyolysis [Recovered/Resolved]
